FAERS Safety Report 4963493-7 (Version None)
Quarter: 2006Q2

REPORT INFORMATION
  Report Type: 
  Country: None (occurrence: None)
  Receive Date: 20060404
  Receipt Date: 20060404
  Transmission Date: 20061013
  Serious: Yes (Disabling)
  Sender: FDA-Public Use
  Company Number: None

PATIENT
  Age: 29 Year
  Sex: Male
  Weight: 131.54 kg

DRUGS (1)
  1. CUBICIN [Suspect]
     Indication: WOUND INFECTION STAPHYLOCOCCAL
     Dosage: 800 MG Q24 H IV
     Route: 042
     Dates: start: 20060308, end: 20060310

REACTIONS (3)
  - EYELID OEDEMA [None]
  - RASH GENERALISED [None]
  - SKIN EXFOLIATION [None]
